FAERS Safety Report 9822922 (Version 2)
Quarter: 2014Q1

REPORT INFORMATION
  Report Type: Spontaneous
  Country: US (occurrence: US)
  Receive Date: 20140116
  Receipt Date: 20140116
  Transmission Date: 20141002
  Serious: No
  Sender: FDA-Public Use
  Company Number: US-GILEAD-2010-0031772

PATIENT
  Age: 73 Year
  Sex: Female
  Weight: 74.84 kg

DRUGS (19)
  1. LETAIRIS [Suspect]
     Indication: PULMONARY ARTERIAL HYPERTENSION
     Route: 048
     Dates: start: 20100818, end: 201010
  2. VIAGRA [Concomitant]
  3. TENORMIN [Concomitant]
  4. LASIX [Concomitant]
  5. NORVASC [Concomitant]
  6. COUMADIN [Concomitant]
  7. LOPID [Concomitant]
  8. PRAVACHOL [Concomitant]
  9. PRILOSEC [Concomitant]
  10. ASPIRIN [Concomitant]
  11. PARACETAMOL/HYDROCODONE BITARTRATE [Concomitant]
  12. ZOLOFT [Concomitant]
  13. NEURONTIN [Concomitant]
  14. POTASSIUM CHLORIDE [Concomitant]
  15. CENTRUM SILVER [Concomitant]
  16. CITRACAL-D [Concomitant]
  17. FISH OIL [Concomitant]
  18. BIOTIN [Concomitant]
  19. IRON [Concomitant]

REACTIONS (3)
  - Fatigue [Unknown]
  - Local swelling [Unknown]
  - Dyspnoea [Unknown]
